FAERS Safety Report 6462031-X (Version None)
Quarter: 2009Q4

REPORT INFORMATION
  Report Type: 
  Country: None (occurrence: None)
  Receive Date: 20091130
  Receipt Date: 20091112
  Transmission Date: 20100525
  Serious: Yes (Hospitalization)
  Sender: FDA-Public Use
  Company Number: PHHY2009HU49662

PATIENT
  Age: 47 Year
  Sex: Male

DRUGS (2)
  1. FORADIL T28242+CAPS [Suspect]
     Indication: ASTHMA
  2. AEROLIZER BUDESONIDE T22678+AERO [Suspect]
     Indication: ASTHMA

REACTIONS (1)
  - CARDIAC DISORDER [None]
